FAERS Safety Report 8092274-3 (Version None)
Quarter: 2012Q1

REPORT INFORMATION
  Report Type: 
  Country: None (occurrence: None)
  Receive Date: 20120129
  Receipt Date: 20111122
  Transmission Date: 20120608
  Serious: No
  Sender: FDA-Public Use
  Company Number: US-ABBOTT-11P-163-0876935-00

PATIENT
  Age: 58 Year
  Sex: Female

DRUGS (4)
  1. LYRICA [Concomitant]
     Indication: FIBROMYALGIA
     Dosage: 1 TABLET IN MORNING, 2 TABLETS IN EVENING
  2. HUMIRA [Suspect]
     Indication: PSORIATIC ARTHROPATHY
     Dates: start: 20100901
  3. AVAPRO [Concomitant]
     Indication: HYPERTENSION
     Dosage: DAILY
  4. HYDROCHLOROTHIAZIDE [Concomitant]
     Indication: PRODUCT USED FOR UNKNOWN INDICATION
     Dosage: DAILY

REACTIONS (1)
  - INJECTION SITE PAIN [None]
